FAERS Safety Report 5161181-8 (Version None)
Quarter: 2006Q4

REPORT INFORMATION
  Report Type: 
  Country: None (occurrence: None)
  Receive Date: 20061130
  Receipt Date: 20060803
  Transmission Date: 20070319
  Serious: Yes (Life-Threatening, Hospitalization)
  Sender: FDA-Public Use
  Company Number: US-BRISTOL-MYERS SQUIBB COMPANY-13465257

PATIENT
  Age: 57 Year
  Sex: Male
  Weight: 44 kg

DRUGS (9)
  1. ERBITUX [Suspect]
     Indication: OROPHARYNGEAL CANCER STAGE UNSPECIFIED
     Route: 042
     Dates: start: 20060801
  2. RADIATION THERAPY [Concomitant]
  3. ZOFRAN [Concomitant]
  4. DECADRON [Concomitant]
  5. BENADRYL [Concomitant]
  6. METOPROLOL SUCCINATE [Concomitant]
  7. RANITIDINE [Concomitant]
  8. REMERON [Concomitant]
  9. VITAMINS [Concomitant]

REACTIONS (1)
  - ANAPHYLACTIC SHOCK [None]
